FAERS Safety Report 7456151-0 (Version None)
Quarter: 2011Q2

REPORT INFORMATION
  Report Type: 
  Country: None (occurrence: None)
  Receive Date: 20110426
  Receipt Date: 20110420
  Transmission Date: 20111010
  Serious: Yes (Other)
  Sender: FDA-Public Use
  Company Number: ACO_23506_2011

PATIENT
  Age: 42 Year
  Sex: Female

DRUGS (9)
  1. AMANTADINE HCL [Concomitant]
  2. NUVIGIL [Concomitant]
  3. SERTRALINE (SERTRALINE) [Concomitant]
  4. VESICARE [Concomitant]
  5. AMPYRA [Suspect]
     Indication: PRODUCT USED FOR UNKNOWN INDICATION
     Dosage: 10 MG, ORAL
     Route: 048
     Dates: start: 20110224, end: 20110310
  6. BACLOFEN [Concomitant]
  7. COPAXONE [Concomitant]
  8. CLARITIN /00917501/ (LORATADINE) [Concomitant]
  9. DDAVP /00361901/ (DESMOPRESSIN) [Concomitant]

REACTIONS (7)
  - CONFUSIONAL STATE [None]
  - FOAMING AT MOUTH [None]
  - CONVULSION [None]
  - INSOMNIA [None]
  - DYSKINESIA [None]
  - BRUXISM [None]
  - TONGUE BITING [None]
